FAERS Safety Report 14649673 (Version 1)
Quarter: 2018Q1

REPORT INFORMATION
  Report Type: Report from Study
  Country: US (occurrence: US)
  Receive Date: 20180316
  Receipt Date: 20180316
  Transmission Date: 20180509
  Serious: Yes (Other)
  Sender: FDA-Public Use
  Company Number: US-BAYER-2018-043488

PATIENT
  Age: 70 Year
  Sex: Male

DRUGS (1)
  1. STIVARGA [Suspect]
     Active Substance: REGORAFENIB
     Indication: COLORECTAL CANCER
     Dosage: 160 MG, QD FOR 3 WEEKS ON 1 WEEK OFF
     Route: 048
     Dates: start: 20180228, end: 20180305

REACTIONS (6)
  - Joint swelling [Not Recovered/Not Resolved]
  - Peripheral swelling [Not Recovered/Not Resolved]
  - Joint range of motion decreased [None]
  - Pain in extremity [Not Recovered/Not Resolved]
  - Muscle fatigue [None]
  - Frequent bowel movements [None]

NARRATIVE: CASE EVENT DATE: 2018
